FAERS Safety Report 12194159 (Version 1)
Quarter: 2016Q1

REPORT INFORMATION
  Report Type: Spontaneous
  Country: US (occurrence: None)
  Receive Date: 20160318
  Receipt Date: 20160318
  Transmission Date: 20160526
  Serious: Yes (Hospitalization)
  Sender: FDA-Public Use
  Company Number: None

PATIENT
  Age: 51 Year
  Sex: Female
  Weight: 76.2 kg

DRUGS (3)
  1. TYLENOL [Concomitant]
     Active Substance: ACETAMINOPHEN
  2. LOSEC [Concomitant]
     Active Substance: OMEPRAZOLE
  3. SCOPOLAMINE TRANDERMAL SYSTEM [Suspect]
     Active Substance: SCOPOLAMINE
     Indication: VERTIGO
     Dates: start: 20160222, end: 20160316

REACTIONS (13)
  - Dry mouth [None]
  - Tremor [None]
  - Inappropriate schedule of drug administration [None]
  - Blood pressure increased [None]
  - Tachycardia [None]
  - Nausea [None]
  - Dizziness [None]
  - Thirst [None]
  - Skin discolouration [None]
  - Paraesthesia [None]
  - Feeling jittery [None]
  - Abdominal pain [None]
  - Feeling abnormal [None]

NARRATIVE: CASE EVENT DATE: 20160316
